FAERS Safety Report 7607696-1 (Version None)
Quarter: 2011Q3

REPORT INFORMATION
  Report Type: 
  Country: None (occurrence: None)
  Receive Date: 20110713
  Receipt Date: 20110525
  Transmission Date: 20111222
  Serious: Yes (Other)
  Sender: FDA-Public Use
  Company Number: PHHY2011BR46588

PATIENT
  Sex: Female

DRUGS (4)
  1. DIOVAN [Suspect]
     Indication: HYPERTENSION
     Dosage: 80 MG, UNK
  2. DIOVAN [Suspect]
     Dosage: 160 MG, UNK
  3. MODURETIC 5-50 [Suspect]
  4. INSULIN [Concomitant]
     Dosage: TWICE DAILY

REACTIONS (1)
  - DIABETES MELLITUS INADEQUATE CONTROL [None]
